FAERS Safety Report 7820625-0 (Version None)
Quarter: 2011Q4

REPORT INFORMATION
  Report Type: 
  Country: None (occurrence: None)
  Receive Date: 20111018
  Receipt Date: 20110309
  Transmission Date: 20120403
  Serious: No
  Sender: FDA-Public Use
  Company Number: US-BAYER-2011-003085

PATIENT
  Sex: Male

DRUGS (11)
  1. RAPAMUNE [Concomitant]
     Dosage: UNK
     Dates: start: 20101117
  2. NEXAVAR [Suspect]
     Dosage: 200 MG, BID
     Dates: start: 20101020, end: 20110308
  3. AMLODIPINE BESYLATE [Concomitant]
     Dosage: UNK
     Dates: start: 20101027
  4. OMEPRAZOLE [Concomitant]
     Dosage: UNK
     Dates: start: 20101101
  5. METOPROLOL TARTRATE [Concomitant]
     Dosage: UNK
     Dates: start: 20101021
  6. PROMETHAZINE VC W/CODEINE [CITRIC AC,CODEINE,PHENYLEPHR,PROMETHAZ, [Concomitant]
     Dosage: UNK
     Dates: start: 20110210
  7. NEXAVAR [Suspect]
     Indication: LUNG NEOPLASM MALIGNANT
     Dosage: 200 MG, BID
     Route: 048
     Dates: start: 20101020, end: 20110308
  8. LEVOTHYROXINE SODIUM [Concomitant]
     Dosage: UNK
     Dates: start: 20101108
  9. POTASSIUM PHOSPHATES [Concomitant]
     Dosage: UNK
     Dates: start: 20110112
  10. VENLAFAXINE [Concomitant]
     Dosage: UNK
     Dates: start: 20100719
  11. AZITHROMYCIN [Concomitant]
     Dosage: UNK
     Dates: start: 20110302

REACTIONS (4)
  - DIARRHOEA [None]
  - HOSPICE CARE [None]
  - FATIGUE [None]
  - ABDOMINAL PAIN [None]
